FAERS Safety Report 6192337-3 (Version None)
Quarter: 2009Q2

REPORT INFORMATION
  Report Type: 
  Country: None (occurrence: None)
  Receive Date: 20090518
  Receipt Date: 20090504
  Transmission Date: 20091009
  Serious: Yes (Hospitalization)
  Sender: FDA-Public Use
  Company Number: DK-RANBAXY-2009RR-23971

PATIENT
  Age: 49 Year
  Sex: Male

DRUGS (9)
  1. CLARITHROMYCIN [Suspect]
     Indication: MYCOBACTERIUM MARINUM INFECTION
     Dosage: 500 MG, BID
  2. DOXYCYCLINE TABLETS [Suspect]
     Indication: MYCOBACTERIUM MARINUM INFECTION
     Dosage: 100 MG, BID
  3. RIFAMPICIN [Suspect]
     Indication: BACTERIAL INFECTION
     Dosage: 600 MG, UNK
  4. ETHAMBUTAMOL [Suspect]
     Indication: BACTERIAL INFECTION
     Dosage: 1200 MG, QD
  5. PREDNISOLONE [Concomitant]
     Indication: SKIN LESION
     Dosage: UNK
  6. PREDNISOLONE [Concomitant]
     Indication: ARTHROPATHY
  7. METHOTREXATE [Concomitant]
     Dosage: UNK
  8. INFLIXIMAB [Concomitant]
     Dosage: UNK
  9. INFLIXIMAB [Concomitant]
     Dosage: UNK

REACTIONS (3)
  - HAEMODIALYSIS [None]
  - HYPERCALCAEMIA [None]
  - RENAL FAILURE [None]
